FAERS Safety Report 10027119 (Version 2)
Quarter: 2014Q1

REPORT INFORMATION
  Report Type: Spontaneous
  Country: US (occurrence: US)
  Receive Date: 20140321
  Receipt Date: 20140321
  Transmission Date: 20141002
  Serious: No
  Sender: FDA-Public Use
  Company Number: US-MYLANLABS-2013S1014636

PATIENT
  Age: 56 Year
  Sex: Female
  Weight: 65.77 kg

DRUGS (6)
  1. ESTRADIOL TRANSDERMAL SYSTEM, USP [Suspect]
     Indication: HORMONE REPLACEMENT THERAPY
     Dosage: CHANGED QWEEK
     Route: 062
     Dates: start: 20130623, end: 20130701
  2. CYCLOBENZAPRINE [Concomitant]
     Indication: FIBROMYALGIA
     Route: 048
  3. TRAZODONE [Concomitant]
     Indication: FIBROMYALGIA
     Route: 048
  4. TOPIRAMATE [Concomitant]
     Indication: MIGRAINE
     Dosage: PATIENT REPORTEDLY TAKES TWO, 50MG TABLETS, DAILY.
     Route: 048
  5. PROTONIX [Concomitant]
     Indication: OESOPHAGITIS
     Route: 048
  6. ZYRTEC [Concomitant]
     Indication: MULTIPLE ALLERGIES
     Route: 048

REACTIONS (4)
  - Application site rash [Not Recovered/Not Resolved]
  - Application site scab [Not Recovered/Not Resolved]
  - Application site irritation [Not Recovered/Not Resolved]
  - Application site pruritus [Not Recovered/Not Resolved]
